FAERS Safety Report 6884119-1 (Version None)
Quarter: 2010Q3

REPORT INFORMATION
  Report Type: 
  Country: None (occurrence: None)
  Receive Date: 20100727
  Receipt Date: 20100713
  Transmission Date: 20110219
  Serious: Yes (Other)
  Sender: FDA-Public Use
  Company Number: 7010986

PATIENT
  Age: 41 Year
  Sex: Female

DRUGS (2)
  1. REBIF [Suspect]
     Indication: MULTIPLE SCLEROSIS
     Dosage: 44 MCG, 3 IN 1 WK; SUBCUTANEOUS
     Route: 058
     Dates: start: 20090806
  2. UNSPECIFIED MEDICATIONS(ALL OTHER THERAPEUTIC PRODUCTS) [Concomitant]

REACTIONS (11)
  - ABDOMINAL DISTENSION [None]
  - DIARRHOEA [None]
  - DRUG DOSE OMISSION [None]
  - DYSSTASIA [None]
  - FAECALOMA [None]
  - FATIGUE [None]
  - GAIT DISTURBANCE [None]
  - LYMPHADENITIS [None]
  - MULTIPLE SCLEROSIS RELAPSE [None]
  - NO THERAPEUTIC RESPONSE [None]
  - VIRAL INFECTION [None]
